FAERS Safety Report 4892243-8 (Version None)
Quarter: 2006Q1

REPORT INFORMATION
  Report Type: 
  Country: None (occurrence: None)
  Receive Date: 20060125
  Receipt Date: 20060125
  Transmission Date: 20060701
  Serious: Yes (Death)
  Sender: FDA-Public Use
  Company Number: None

PATIENT
  Sex: Male

DRUGS (2)
  1. DIPRIVAN [Suspect]
     Indication: INJURY
     Dosage: 100G   VARIOUS   IV DRIP
     Route: 041
     Dates: start: 20051001, end: 20051007
  2. DIPRIVAN [Suspect]
     Indication: SEDATION
     Dosage: 100G   VARIOUS   IV DRIP
     Route: 041
     Dates: start: 20051001, end: 20051007

REACTIONS (9)
  - ACUTE RESPIRATORY DISTRESS SYNDROME [None]
  - AGITATION [None]
  - AZOTAEMIA [None]
  - BLOOD TRIGLYCERIDES INCREASED [None]
  - CARDIAC ARREST [None]
  - HYPOXIA [None]
  - METABOLIC ACIDOSIS [None]
  - PULMONARY OEDEMA [None]
  - RALES [None]
